FAERS Safety Report 10576231 (Version 7)
Quarter: 2015Q2

REPORT INFORMATION
  Report Type: Spontaneous
  Country: US (occurrence: US)
  Receive Date: 20141111
  Receipt Date: 20150520
  Transmission Date: 20150821
  Serious: Yes (Other)
  Sender: FDA-Public Use
  Company Number: US-PFIZER INC-2014306989

PATIENT
  Age: 74 Year
  Sex: Male
  Weight: 73.92 kg

DRUGS (14)
  1. IMODIUM [Concomitant]
     Active Substance: LOPERAMIDE HYDROCHLORIDE
     Dosage: UNK, AS NEEDED
     Dates: start: 2012
  2. GAS-X [Concomitant]
     Active Substance: DIMETHICONE
  3. LOMOTIL [Concomitant]
     Active Substance: ATROPINE SULFATE\DIPHENOXYLATE HYDROCHLORIDE
     Dosage: UNK, AS NEEDED
     Dates: start: 2012
  4. CARDERAL [Concomitant]
     Indication: BLOOD PRESSURE INCREASED
     Dosage: UNK, AS NEEDED
     Dates: end: 2014
  5. SUTENT [Suspect]
     Active Substance: SUNITINIB MALATE
     Dosage: 25 MG, DAILY (28 DAYS ON / 14 DAYS OFF)
     Dates: start: 20140801
  6. ONGLYZA [Concomitant]
     Active Substance: SAXAGLIPTIN HYDROCHLORIDE
     Dosage: 2-3 YEARS PRIOR TO THE INITIAL REPORT
  7. SUTENT [Suspect]
     Active Substance: SUNITINIB MALATE
     Indication: CARCINOID TUMOUR
     Dosage: 37.5 MG, CYCLIC (28 DAYS ON, 14 DAYS OFF)
     Dates: start: 201410
  8. PROSCAR [Concomitant]
     Active Substance: FINASTERIDE
     Dosage: SINCE 2-3 YEARS PRIOR TO THE INITIAL REPORTING
  9. BABY ASPIRIN [Concomitant]
     Active Substance: ASPIRIN
     Dosage: SINCE 2-3 YEARS PRIOR TO THE INITIAL REPORTING
  10. SANDOSTATIN [Concomitant]
     Active Substance: OCTREOTIDE ACETATE
     Dosage: UNK, AS NEEDED
     Dates: start: 2010
  11. ZOMETA [Suspect]
     Active Substance: ZOLEDRONIC ACID
     Dosage: EVERY OTHER MONTH, AS NEEDED
     Dates: start: 201410
  12. FLOMAX [Concomitant]
     Active Substance: TAMSULOSIN HYDROCHLORIDE
     Dosage: SINCE 8 MONTHS PRIOR TO THE INITIAL REPORTING
     Dates: start: 2014
  13. NORCO [Concomitant]
     Active Substance: ACETAMINOPHEN\HYDROCODONE BITARTRATE
     Dosage: UNK, PRN
     Dates: start: 2010
  14. PARAGARD T 380A [Concomitant]
     Active Substance: COPPER
     Dosage: UNK, AS NEEDED
     Dates: start: 2014

REACTIONS (14)
  - Fatigue [Not Recovered/Not Resolved]
  - Oral pain [Recovered/Resolved]
  - Dizziness [Recovered/Resolved]
  - Blood pressure increased [Recovered/Resolved]
  - Flatulence [Not Recovered/Not Resolved]
  - Product use issue [Not Recovered/Not Resolved]
  - Blister [Recovered/Resolved]
  - Weight decreased [Recovered/Resolved]
  - Diarrhoea [Not Recovered/Not Resolved]
  - Hyperaesthesia [Recovered/Resolved]
  - Dyspnoea [Not Recovered/Not Resolved]
  - Abnormal faeces [Recovered/Resolved]
  - Asthenia [Not Recovered/Not Resolved]
  - Pyrexia [Recovered/Resolved]

NARRATIVE: CASE EVENT DATE: 201410
